FAERS Safety Report 9006518 (Version 1)
Quarter: 2013Q1

REPORT INFORMATION
  Report Type: Spontaneous
  Country: US (occurrence: US)
  Receive Date: 20130110
  Receipt Date: 20130110
  Transmission Date: 20140127
  Serious: No
  Sender: FDA-Public Use
  Company Number: US-MYLANLABS-2012S1015862

PATIENT
  Age: 67 Year
  Sex: Female

DRUGS (7)
  1. METOLAZONE [Suspect]
     Indication: FLUID RETENTION
     Route: 048
     Dates: end: 201203
  2. CHLORTHALIDONE [Suspect]
     Indication: FLUID RETENTION
     Route: 048
     Dates: start: 201203
  3. CHLORTHALIDONE [Suspect]
     Indication: FLUID RETENTION
     Route: 048
     Dates: start: 201203
  4. LASIX [Concomitant]
     Indication: FLUID RETENTION
  5. WARFARIN [Concomitant]
     Indication: ATRIAL FIBRILLATION
  6. POTASSIUM [Concomitant]
     Indication: ELECTROLYTE SUBSTITUTION THERAPY
  7. MAGNESIUM [Concomitant]
     Indication: MINERAL SUPPLEMENTATION

REACTIONS (2)
  - Muscle spasms [Not Recovered/Not Resolved]
  - Muscle spasms [Not Recovered/Not Resolved]
